FAERS Safety Report 17430554 (Version 3)
Quarter: 2020Q3

REPORT INFORMATION
  Report Type: Spontaneous
  Country: US (occurrence: US)
  Receive Date: 20200218
  Receipt Date: 20200825
  Transmission Date: 20201102
  Serious: No
  Sender: FDA-Public Use
  Company Number: US-VERTEX PHARMACEUTICALS-2020-002899

PATIENT
  Age: 25 Year
  Sex: Female

DRUGS (2)
  1. TRIKAFTA [Suspect]
     Active Substance: ELEXACAFTOR\IVACAFTOR\TEZACAFTOR
     Indication: CYSTIC FIBROSIS
     Dosage: 100 MG ELEXA/ 75 MG TEZA/ 50 MG IVA AM AND 150 MG IVA PM
     Route: 048
     Dates: start: 20191126, end: 20191209
  2. TRIKAFTA [Suspect]
     Active Substance: ELEXACAFTOR\IVACAFTOR\TEZACAFTOR
     Dosage: 100 MG ELEXA/ 75 MG TEZA/ 50 MG IVA AM AND 150 MG IVA PM
     Route: 048
     Dates: start: 20200117

REACTIONS (3)
  - Rash [Recovered/Resolved]
  - Stress [Unknown]
  - Anxiety [Unknown]

NARRATIVE: CASE EVENT DATE: 20191209
